FAERS Safety Report 7435628-8 (Version None)
Quarter: 2011Q2

REPORT INFORMATION
  Report Type: 
  Country: None (occurrence: None)
  Receive Date: 20110425
  Receipt Date: 20110207
  Transmission Date: 20111010
  Serious: No
  Sender: FDA-Public Use
  Company Number: US-MYLANLABS-2010S1023636

PATIENT
  Age: 82 Year
  Sex: Male

DRUGS (7)
  1. POTASSIUM [Concomitant]
  2. COREG [Concomitant]
  3. CLONIDINE [Suspect]
     Indication: BLOOD PRESSURE INCREASED
     Route: 062
     Dates: start: 20100901
  4. PLAVIX [Concomitant]
  5. FISH OIL [Concomitant]
  6. ZOLOFT [Concomitant]
  7. ASPIRIN [Concomitant]

REACTIONS (5)
  - APPLICATION SITE IRRITATION [None]
  - APPLICATION SITE PRURITUS [None]
  - APPLICATION SITE PAIN [None]
  - APPLICATION SITE EROSION [None]
  - APPLICATION SITE SCAR [None]
